FAERS Safety Report 8819941 (Version 1)
Quarter: 2012Q4

REPORT INFORMATION
  Report Type: Report from Study
  Country: US (occurrence: US)
  Receive Date: 20121001
  Receipt Date: 20121001
  Transmission Date: 20130627
  Serious: Yes (Other)
  Sender: FDA-Public Use
  Company Number: US-CELGENEUS-163-21880-10031770

PATIENT
  Age: 85 Year
  Sex: Female
  Weight: 58.1 kg

DRUGS (4)
  1. REVLIMID [Suspect]
     Indication: MULTIPLE MYELOMA
     Dosage: 25 Milligram
     Route: 048
     Dates: start: 20060126
  2. REVLIMID [Suspect]
     Dosage: 25 Milligram
     Route: 048
     Dates: start: 20100114, end: 20100203
  3. DEXAMETHASONE [Suspect]
     Indication: MULTIPLE MYELOMA
     Dosage: 40 Milligram
     Route: 048
     Dates: start: 20060126
  4. DEXAMETHASONE [Suspect]
     Dosage: 40 Milligram
     Route: 048
     Dates: start: 20100114, end: 20100204

REACTIONS (1)
  - Memory impairment [Not Recovered/Not Resolved]
